FAERS Safety Report 25532104 (Version 1)
Quarter: 2025Q3

REPORT INFORMATION
  Report Type: Report from Study
  Country: US (occurrence: US)
  Receive Date: 20250709
  Receipt Date: 20250709
  Transmission Date: 20251021
  Serious: No
  Sender: ACADIA PHARMACEUTICALS
  Company Number: US-ACADIA PHARMACEUTICALS INC.-ACA-2025-TRF-007786

PATIENT
  Age: 24 Year
  Sex: Female

DRUGS (1)
  1. DAYBUE [Suspect]
     Active Substance: TROFINETIDE
     Indication: Product used for unknown indication
     Dosage: 40 MILLILITER, BID
     Route: 065
     Dates: start: 2023

REACTIONS (4)
  - Adverse drug reaction [Unknown]
  - Tremor [Unknown]
  - Therapeutic product effect decreased [Unknown]
  - Dyskinesia [Unknown]
